FAERS Safety Report 4319449-0 (Version None)
Quarter: 2004Q1

REPORT INFORMATION
  Report Type: 
  Country: None (occurrence: None)
  Receive Date: 20040316
  Receipt Date: 20040303
  Transmission Date: 20041129
  Serious: Yes (Death)
  Sender: FDA-Public Use
  Company Number: USA040360815

PATIENT
  Age: 67 Year
  Sex: Female

DRUGS (1)
  1. XIGRIS [Suspect]
     Indication: UROSEPSIS
     Dosage: 24 UG/KG/HR/96 HOURS OTHER
     Route: 050

REACTIONS (1)
  - MYOCARDIAL INFARCTION [None]
